FAERS Safety Report 10233460 (Version 1)
Quarter: 2014Q2

REPORT INFORMATION
  Report Type: Spontaneous
  Country: US (occurrence: US)
  Receive Date: 20140612
  Receipt Date: 20140612
  Transmission Date: 20141212
  Serious: Yes (Hospitalization, Other)
  Sender: FDA-Public Use
  Company Number: PHHY2014US068814

PATIENT
  Age: 4 Year
  Sex: Male

DRUGS (14)
  1. CARBOPLATIN [Suspect]
     Indication: MEDULLOBLASTOMA
  2. CISPLATIN [Suspect]
     Indication: MEDULLOBLASTOMA
  3. CETUXIMAB [Suspect]
     Indication: MEDULLOBLASTOMA
     Dosage: 250 MG/M2/DAYS ON 7, 14 AND 21
  4. CYCLOPHOSPHAMIDE [Concomitant]
     Indication: MEDULLOBLASTOMA
     Dosage: 1000 MG/M2/DAY GIVEN ON DAYS 1 AND 2
  5. ETOPOSIDE [Concomitant]
     Indication: MEDULLOBLASTOMA
  6. VINCRISTINE [Concomitant]
     Indication: MEDULLOBLASTOMA
  7. VINBLASTINE [Concomitant]
     Indication: MEDULLOBLASTOMA
     Dosage: 4 MG/M2/DAY ON DAYS 1 AND 7
  8. GABAPENTIN [Concomitant]
     Indication: NEURALGIA
  9. MEGESTROL [Concomitant]
     Indication: INCREASED APPETITE
  10. PENTAMIDINE [Concomitant]
     Indication: ANTIFUNGAL PROPHYLAXIS
  11. ONDANSETRON [Concomitant]
     Indication: NAUSEA
  12. LORAZEPAM [Concomitant]
     Indication: NAUSEA
  13. DOCUSATE [Concomitant]
     Indication: CONSTIPATION
  14. POLYETHYLENE GLYCOL [Concomitant]
     Indication: CONSTIPATION

REACTIONS (9)
  - Hypomagnesaemia [Recovered/Resolved]
  - Tetany [Unknown]
  - Tachycardia [Unknown]
  - Convulsion [Unknown]
  - Joint stiffness [Unknown]
  - Hypocalcaemia [Recovered/Resolved]
  - Hypokalaemia [Recovered/Resolved]
  - Sensory disturbance [Unknown]
  - Feeling abnormal [Unknown]
